FAERS Safety Report 7310480-X (Version None)
Quarter: 2011Q1

REPORT INFORMATION
  Report Type: 
  Country: None (occurrence: None)
  Receive Date: 20110224
  Receipt Date: 20101005
  Transmission Date: 20110831
  Serious: No
  Sender: FDA-Public Use
  Company Number: US-BRISTOL-MYERS SQUIBB COMPANY-15319635

PATIENT
  Age: 85 Year
  Sex: Female

DRUGS (2)
  1. METFORMIN HCL [Suspect]
     Dosage: STARTED 5 MONTHS AGO
  2. PRANDIN [Concomitant]

REACTIONS (3)
  - WEIGHT INCREASED [None]
  - ABDOMINAL DISTENSION [None]
  - CONSTIPATION [None]
